FAERS Safety Report 6393095-X (Version None)
Quarter: 2009Q4

REPORT INFORMATION
  Report Type: 
  Country: None (occurrence: None)
  Receive Date: 20091008
  Receipt Date: 20091002
  Transmission Date: 20100525
  Serious: Yes (Death, Other)
  Sender: FDA-Public Use
  Company Number: US-ROCHE-652680

PATIENT
  Age: 51 Year
  Sex: Male

DRUGS (9)
  1. VALIUM [Suspect]
     Indication: SLEEP DISORDER THERAPY
     Dosage: RECEIVED AT: 1.30 A.M
     Route: 065
     Dates: start: 20090625
  2. VERSED [Suspect]
     Indication: SLEEP DISORDER THERAPY
     Route: 042
  3. VERSED [Suspect]
     Dosage: RECEIVED AT: 3 A.M., 7:30 A.M.
     Route: 042
     Dates: start: 20090625
  4. ANEXATE [Suspect]
     Indication: REVERSAL OF SEDATION
     Dosage: RECEIVED AT: 11 A.M.
     Route: 065
     Dates: start: 20090625
  5. ATIVAN [Suspect]
     Indication: SLEEP DISORDER THERAPY
     Route: 042
  6. ATIVAN [Suspect]
     Dosage: RECEIVED AT: 2 A.M. AND 5 A.M.
     Route: 042
     Dates: start: 20090625
  7. DIPRIVAN [Suspect]
     Indication: INSOMNIA
     Dosage: ROUTE: INTRAVENOUS DRIP, FREQUENCY: EVERY NIGHT
     Route: 042
  8. DIPRIVAN [Suspect]
     Dosage: DOSE DECREASED,
     Route: 042
  9. XYLOCAINE [Suspect]
     Indication: DRUG USE FOR UNKNOWN INDICATION
     Dosage: RECEIVED AT: 10.40 A.M.
     Route: 042
     Dates: start: 20090625

REACTIONS (6)
  - ANALGESIC DRUG LEVEL ABOVE THERAPEUTIC [None]
  - DRUG DEPENDENCE [None]
  - MYOCARDIAL INFARCTION [None]
  - NO THERAPEUTIC RESPONSE [None]
  - RESPIRATORY ARREST [None]
  - SEDATION [None]
